FAERS Safety Report 9048338 (Version 1)
Quarter: 2013Q1

REPORT INFORMATION
  Report Type: Spontaneous
  Country: US (occurrence: None)
  Receive Date: 20130130
  Receipt Date: 20130130
  Transmission Date: 20140127
  Serious: Yes (Hospitalization, Other)
  Sender: FDA-Public Use
  Company Number: None

PATIENT
  Age: 78 Year
  Sex: Male
  Weight: 60.1 kg

DRUGS (1)
  1. SULFAMETHOXAZOLE/TRIMETHOPRIM [Suspect]
     Indication: SURGERY
     Route: 048
     Dates: start: 20121113, end: 20121212

REACTIONS (3)
  - Dyspnoea [None]
  - Hyperkalaemia [None]
  - Renal tubular acidosis [None]
